FAERS Safety Report 8837491 (Version 2)
Quarter: 2012Q4

REPORT INFORMATION
  Report Type: 
  Country: US (occurrence: US)
  Receive Date: 20121012
  Receipt Date: 20121105
  Transmission Date: 20130627
  Serious: No
  Sender: FDA-Public Use
  Company Number: US-PFIZER INC-2012251479

PATIENT
  Age: 58 Year
  Sex: Female
  Weight: 72.56 kg

DRUGS (3)
  1. CELEBREX [Suspect]
     Indication: SHOULDER PAIN
     Dosage: 200 mg, 2x/day
     Route: 048
     Dates: start: 20120925, end: 2012
  2. REVATIO [Concomitant]
     Dosage: 20 mg, 2x/day
  3. MORPHINE [Concomitant]
     Dosage: 15 mg, 1x/day

REACTIONS (4)
  - Abdominal distension [Unknown]
  - Abdominal pain [Unknown]
  - Abdominal pain upper [Unknown]
  - Musculoskeletal chest pain [Unknown]
